FAERS Safety Report 6161657-0 (Version None)
Quarter: 2009Q2

REPORT INFORMATION
  Report Type: 
  Country: None (occurrence: None)
  Receive Date: 20090421
  Receipt Date: 20090416
  Transmission Date: 20091009
  Serious: No
  Sender: FDA-Public Use
  Company Number: US-B.I. PHARMACEUTICALS,INC./RIDGEFIELD-2009-BP-03836BP

PATIENT
  Age: 62 Year
  Sex: Female
  Weight: 58.06 kg

DRUGS (1)
  1. MICARDIS [Suspect]
     Indication: HYPERTENSION
     Dates: start: 20060101, end: 20090201

REACTIONS (3)
  - ERYTHEMA [None]
  - RASH [None]
  - SKIN DISORDER [None]
